FAERS Safety Report 8126332-1 (Version None)
Quarter: 2012Q1

REPORT INFORMATION
  Report Type: 
  Country: None (occurrence: None)
  Receive Date: 20120209
  Receipt Date: 20120131
  Transmission Date: 20120608
  Serious: Yes (Other)
  Sender: FDA-Public Use
  Company Number: US-ROCHE-1019949

PATIENT
  Age: 59 Year
  Sex: Male
  Weight: 101.9 kg

DRUGS (2)
  1. ACTEMRA [Suspect]
     Indication: RHEUMATOID ARTHRITIS
     Route: 065
     Dates: start: 20120118
  2. ACTEMRA [Suspect]
     Indication: RHEUMATOID ARTHRITIS
     Dosage: MOST RECENT DOSE TAKEN ON 26 OCT 2011
     Route: 058
     Dates: start: 20110803

REACTIONS (1)
  - DEEP VEIN THROMBOSIS [None]
